FAERS Safety Report 24640146 (Version 1)
Quarter: 2024Q4

REPORT INFORMATION
  Report Type: Spontaneous
  Country: CN (occurrence: CN)
  Receive Date: 20241120
  Receipt Date: 20241120
  Transmission Date: 20250114
  Serious: Yes (Hospitalization)
  Sender: NOVO NORDISK
  Company Number: None

PATIENT
  Age: 58 Year
  Sex: Male
  Weight: 70 kg

DRUGS (1)
  1. INSULIN ASPART\INSULIN DEGLUDEC [Suspect]
     Active Substance: INSULIN ASPART\INSULIN DEGLUDEC
     Indication: Type 2 diabetes mellitus
     Dosage: 34 IU, QD(18 IU BEFORE BREAKFAST AND 16 IU BEFORE DINNER)
     Route: 058
     Dates: start: 20241101, end: 20241107

REACTIONS (2)
  - Hypoglycaemic coma [Recovering/Resolving]
  - Hypoglycaemic encephalopathy [Unknown]

NARRATIVE: CASE EVENT DATE: 20241107
